FAERS Safety Report 7700255-1 (Version None)
Quarter: 2011Q3

REPORT INFORMATION
  Report Type: 
  Country: None (occurrence: None)
  Receive Date: 20110822
  Receipt Date: 20110818
  Transmission Date: 20111222
  Serious: Yes (Hospitalization, Other)
  Sender: FDA-Public Use
  Company Number: FR-AMGEN-FRASP2011042064

PATIENT
  Age: 59 Year
  Sex: Male

DRUGS (9)
  1. NEULASTA [Suspect]
     Indication: PRODUCT USED FOR UNKNOWN INDICATION
     Dosage: 6 MG, UNK
     Route: 058
     Dates: start: 20110402, end: 20110402
  2. CRESTOR [Concomitant]
  3. NEXIUM [Concomitant]
     Dosage: UNK
  4. EUPRESSYL                          /00631801/ [Concomitant]
     Dosage: UNK
  5. LANTUS [Concomitant]
     Indication: DIABETES MELLITUS
     Dosage: 22 IU, UNK
  6. HUMALOG [Concomitant]
     Indication: DIABETES MELLITUS
     Dosage: UNK UNK, BID
  7. NEBIVOLOL HCL [Concomitant]
     Dosage: 5 MG, UNK
  8. MOTILIUM                           /00498201/ [Concomitant]
  9. TARDYFERON                         /00023503/ [Concomitant]
     Dosage: UNK

REACTIONS (8)
  - LEUKOCYTOSIS [None]
  - BONE PAIN [None]
  - NEPHRITIC SYNDROME [None]
  - CHOLESTASIS [None]
  - BIOPSY KIDNEY [None]
  - RENAL FAILURE ACUTE [None]
  - MEDICATION ERROR [None]
  - RENAL FAILURE CHRONIC [None]
